FAERS Safety Report 7522881-5 (Version None)
Quarter: 2011Q2

REPORT INFORMATION
  Report Type: 
  Country: None (occurrence: None)
  Receive Date: 20110603
  Receipt Date: 20110523
  Transmission Date: 20111010
  Serious: Yes (Other)
  Sender: FDA-Public Use
  Company Number: JP-JNJFOC-20110512483

PATIENT

DRUGS (4)
  1. LOPERAMIDE HCL [Suspect]
     Indication: DIARRHOEA
     Dosage: 1 CAPSULE TWICE DAILY
     Route: 048
  2. KREMEZIN [Suspect]
     Indication: DIABETIC NEPHROPATHY
     Route: 065
  3. KREMEZIN [Suspect]
     Route: 065
  4. LOPERAMIDE HCL [Suspect]
     Dosage: 1 CAPSULE 3 TIMES DAILY
     Route: 048
     Dates: start: 20110513

REACTIONS (2)
  - ABDOMINAL PAIN [None]
  - DIARRHOEA [None]
